FAERS Safety Report 10448343 (Version 2)
Quarter: 2014Q4

REPORT INFORMATION
  Report Type: Spontaneous
  Country: US (occurrence: US)
  Receive Date: 20140911
  Receipt Date: 20141022
  Transmission Date: 20150528
  Serious: Yes (Other)
  Sender: FDA-Public Use
  Company Number: ALCN2014US005115

PATIENT
  Sex: Female
  Weight: 53.61 kg

DRUGS (1)
  1. GENTEAL MILD [Suspect]
     Active Substance: HYPROMELLOSE 2910 (4000 MPA.S)
     Dosage: UNK
     Route: 047

REACTIONS (2)
  - Eye haemorrhage [Recovered/Resolved]
  - Condition aggravated [Recovered/Resolved]
